FAERS Safety Report 7504491-9 (Version None)
Quarter: 2011Q2

REPORT INFORMATION
  Report Type: 
  Country: None (occurrence: None)
  Receive Date: 20110525
  Receipt Date: 20110513
  Transmission Date: 20111010
  Serious: Yes (Other)
  Sender: FDA-Public Use
  Company Number: DE-UCBSA-009133

PATIENT
  Sex: Male
  Weight: 83 kg

DRUGS (3)
  1. CA D3 [Concomitant]
  2. CERTOLIZUMAB PEGOL [Suspect]
     Indication: RHEUMATOID ARTHRITIS
     Route: 058
     Dates: start: 20090501
  3. IBUPROFEN [Concomitant]
     Indication: PAIN
     Dosage: UNIT DOSE: 600MG
     Route: 048

REACTIONS (1)
  - LYMPHOMA [None]
